FAERS Safety Report 9147746 (Version 2)
Quarter: 2013Q2

REPORT INFORMATION
  Report Type: Spontaneous
  Country: US (occurrence: US)
  Receive Date: 20130307
  Receipt Date: 20130403
  Transmission Date: 20140414
  Serious: Yes (Hospitalization)
  Sender: FDA-Public Use
  Company Number: US-ELI_LILLY_AND_COMPANY-US201111006871

PATIENT
  Age: 71 Year
  Sex: Female

DRUGS (9)
  1. FORTEO [Suspect]
     Indication: OSTEOPOROSIS
     Dosage: 20 UG, QD
  2. FORTEO [Suspect]
     Dosage: 20 UG, QD
     Dates: start: 20110828
  3. FORTEO [Suspect]
     Dosage: 20 UG, QD
     Dates: start: 20110828
  4. CALCIUM CITRATE [Concomitant]
  5. VITAMIN D [Concomitant]
  6. ASPIRIN [Concomitant]
  7. SERTRALINE [Concomitant]
     Dosage: 50 MG, QD
  8. ALPRAZOLAM [Concomitant]
     Dosage: 0.5 MG, QD
  9. HYDROCHLOROTHIAZIDE [Concomitant]
     Dosage: 12.5 MG, QD

REACTIONS (8)
  - Chronic obstructive pulmonary disease [Unknown]
  - Pneumonia [Unknown]
  - Influenza [Unknown]
  - Arthralgia [Unknown]
  - Injection site bruising [Unknown]
  - Injection site pain [Unknown]
  - Malaise [Unknown]
  - Asthenia [Unknown]
